FAERS Safety Report 12655022 (Version 1)
Quarter: 2016Q3

REPORT INFORMATION
  Report Type: Spontaneous
  Country: US (occurrence: None)
  Receive Date: 20160815
  Receipt Date: 20160815
  Transmission Date: 20161109
  Serious: Yes (Other)
  Sender: FDA-Public Use
  Company Number: None

PATIENT
  Age: 7 Year
  Sex: Male
  Weight: 27.22 kg

DRUGS (2)
  1. ARIPIPRAZOLE, 5MG CAMBER [Suspect]
     Active Substance: ARIPIPRAZOLE
     Indication: AUTISM
     Route: 048
     Dates: start: 20150801, end: 20160720
  2. ARIPIPRAZOLE, 5MG CAMBER [Suspect]
     Active Substance: ARIPIPRAZOLE
     Indication: ANTISOCIAL BEHAVIOUR
     Route: 048
     Dates: start: 20150801, end: 20160720

REACTIONS (1)
  - Tardive dyskinesia [None]

NARRATIVE: CASE EVENT DATE: 20160720
